FAERS Safety Report 10202199 (Version 1)
Quarter: 2014Q2

REPORT INFORMATION
  Report Type: Spontaneous
  Country: US (occurrence: US)
  Receive Date: 20140528
  Receipt Date: 20140528
  Transmission Date: 20141212
  Serious: Yes (Hospitalization)
  Sender: FDA-Public Use
  Company Number: US-SA-2014SA066480

PATIENT
  Age: 75 Year
  Sex: Male

DRUGS (1)
  1. RENVELA [Suspect]
     Indication: HYPERPHOSPHATAEMIA
     Dosage: 800 MG TABLET, 1 TABLET WITH MEALS
     Route: 048
     Dates: start: 201401

REACTIONS (2)
  - Cellulitis [Unknown]
  - Atrial fibrillation [Unknown]
